FAERS Safety Report 4384788-4 (Version None)
Quarter: 2004Q2

REPORT INFORMATION
  Report Type: 
  Country: None (occurrence: None)
  Receive Date: 20040621
  Receipt Date: 20040614
  Transmission Date: 20050107
  Serious: Yes (Life-Threatening, Hospitalization)
  Sender: FDA-Public Use
  Company Number: HQWYE465115JUN04

PATIENT
  Age: 6 Year
  Sex: Female

DRUGS (12)
  1. RAPAMUNE [Suspect]
     Indication: IMMUNOSUPPRESSANT DRUG THERAPY
     Dates: start: 20011210, end: 20040302
  2. RAPAMUNE [Suspect]
     Indication: PROPHYLAXIS AGAINST TRANSPLANT REJECTION
     Dates: start: 20011210, end: 20040302
  3. CYCLOSPORINE [Concomitant]
  4. CELLCEPT [Concomitant]
  5. PREDNISONE TAB [Concomitant]
  6. AMLODIPINE [Concomitant]
  7. PROPRANOLOL [Concomitant]
  8. FERROUS SULPHATE (FERROUS SULFATE) [Concomitant]
  9. ZINC (ZINC) [Concomitant]
  10. RANITIDINE [Concomitant]
  11. HYDROCHLOROTHIAZIDE 9HYDROCHLOROTHIAZIDE) [Concomitant]
  12. ENALAPRIL MALEATE [Concomitant]

REACTIONS (14)
  - ACUTE RESPIRATORY DISTRESS SYNDROME [None]
  - ANAEMIA [None]
  - CYTOMEGALOVIRUS INFECTION [None]
  - ESCHERICHIA SEPSIS [None]
  - ESCHERICHIA URINARY TRACT INFECTION [None]
  - HYPERTENSION [None]
  - KIDNEY TRANSPLANT REJECTION [None]
  - NEPHROTIC SYNDROME [None]
  - PNEUMONIA [None]
  - PROTEINURIA [None]
  - PULMONARY OEDEMA [None]
  - RESPIRATORY FAILURE [None]
  - SINUSITIS [None]
  - TRANSPLANT ABSCESS [None]
